FAERS Safety Report 11258013 (Version 1)
Quarter: 2015Q3

REPORT INFORMATION
  Report Type: Report from Study
  Country: AU (occurrence: AU)
  Receive Date: 20150710
  Receipt Date: 20150710
  Transmission Date: 20151125
  Serious: Yes (Hospitalization, Other)
  Sender: FDA-Public Use
  Company Number: PHHY2015AU071194

PATIENT
  Age: 54 Year
  Sex: Female

DRUGS (2)
  1. CLOZARIL [Suspect]
     Active Substance: CLOZAPINE
     Indication: SCHIZOPHRENIA
     Dosage: 450 MG, QD (NOCTE)
     Route: 048
     Dates: start: 20091016, end: 20150601
  2. CLOZARIL [Suspect]
     Active Substance: CLOZAPINE
     Dosage: UNK
     Route: 048
     Dates: start: 20150609

REACTIONS (7)
  - Antipsychotic drug level increased [Unknown]
  - Hypercalcaemia [Unknown]
  - Pneumonia [Unknown]
  - Anaemia [Unknown]
  - Delirium [Unknown]
  - Hip fracture [Unknown]
  - Sedation [Unknown]

NARRATIVE: CASE EVENT DATE: 20150604
